FAERS Safety Report 4829790-0 (Version None)
Quarter: 2005Q4

REPORT INFORMATION
  Report Type: 
  Country: None (occurrence: None)
  Receive Date: 20051028
  Receipt Date: 20050801
  Transmission Date: 20060501
  Serious: No
  Sender: FDA-Public Use
  Company Number: COT_0177_2005

PATIENT
  Age: 50 Year
  Sex: Female
  Weight: 78.9259 kg

DRUGS (12)
  1. VENTAVIS [Suspect]
     Indication: PULMONARY HYPERTENSION
     Dosage: 5 MCG VARIABLE IH
     Route: 055
     Dates: start: 20050711
  2. VENTAVIS [Suspect]
     Indication: PULMONARY HYPERTENSION
     Dosage: 5 MCG VARIABLE IH
     Route: 055
     Dates: start: 20050711
  3. K-DUR 10 [Concomitant]
  4. IPRATROPRIUM [Concomitant]
  5. FOLIC ACID [Concomitant]
  6. ALBUTEROL [Concomitant]
  7. DOCUSATE [Concomitant]
  8. FUROSEMIDE [Concomitant]
  9. PREVACID [Concomitant]
  10. MULTI-VITAMIN [Concomitant]
  11. VITAMIN B-12 [Concomitant]
  12. OXYGEN [Concomitant]

REACTIONS (1)
  - PAIN IN EXTREMITY [None]
